FAERS Safety Report 9842902 (Version 1)
Quarter: 2014Q1

REPORT INFORMATION
  Report Type: Spontaneous
  Country: US (occurrence: US)
  Receive Date: 20140124
  Receipt Date: 20140124
  Transmission Date: 20141002
  Serious: Yes (Other)
  Sender: FDA-Public Use
  Company Number: PHHY2014US005560

PATIENT
  Age: 64 Year
  Sex: Female

DRUGS (4)
  1. PACLITAXEL [Suspect]
     Indication: CHEMOTHERAPY
     Route: 041
  2. PACLITAXEL [Suspect]
     Indication: METASTASES TO PERITONEUM
  3. CARBOPLATIN [Suspect]
     Indication: CHEMOTHERAPY
  4. CARBOPLATIN [Suspect]
     Indication: METASTASES TO PERITONEUM

REACTIONS (6)
  - Toxic skin eruption [Recovered/Resolved]
  - Telangiectasia [Recovered/Resolved]
  - Skin lesion [Recovered/Resolved]
  - Macule [Recovered/Resolved]
  - Skin erosion [Recovered/Resolved]
  - Erythema [Recovered/Resolved]
